FAERS Safety Report 20718817 (Version 2)
Quarter: 2022Q2

REPORT INFORMATION
  Report Type: Spontaneous
  Country: ES (occurrence: ES)
  Receive Date: 20220418
  Receipt Date: 20220527
  Transmission Date: 20220721
  Serious: Yes (Other)
  Sender: FDA-Public Use
  Company Number: ES-SA-SAC20220405000559

PATIENT
  Age: 61 Year
  Sex: Female
  Weight: 70 kg

DRUGS (2)
  1. METFORMIN [Suspect]
     Active Substance: METFORMIN HYDROCHLORIDE
     Indication: Product used for unknown indication
     Dosage: UNK
     Route: 065
  2. INSULIN GLARGINE [Suspect]
     Active Substance: INSULIN GLARGINE
     Indication: Type 2 diabetes mellitus
     Dosage: 16 DOSAGE FORM, ONCE A DAY
     Route: 058
     Dates: start: 202102

REACTIONS (16)
  - Cataract [Recovering/Resolving]
  - Diabetes mellitus inadequate control [Unknown]
  - Somnolence [Recovering/Resolving]
  - Thirst [Recovering/Resolving]
  - Lactose intolerance [Unknown]
  - Restlessness [Recovering/Resolving]
  - Weight decreased [Unknown]
  - Abdominal distension [Unknown]
  - Nervousness [Recovering/Resolving]
  - Blood glucose increased [Recovering/Resolving]
  - Diplopia [Unknown]
  - Infection [Recovering/Resolving]
  - Fatigue [Recovering/Resolving]
  - Weight increased [Unknown]
  - Diarrhoea [Recovering/Resolving]
  - Eating disorder [Unknown]
